FAERS Safety Report 6981922-4 (Version None)
Quarter: 2010Q3

REPORT INFORMATION
  Report Type: 
  Country: None (occurrence: None)
  Receive Date: 20100914
  Receipt Date: 20091102
  Transmission Date: 20110219
  Serious: No
  Sender: FDA-Public Use
  Company Number: US-PFIZER INC-2009293185

PATIENT
  Sex: Female
  Weight: 65.76 kg

DRUGS (5)
  1. LYRICA [Suspect]
     Indication: FIBROMYALGIA
     Dosage: 75 MG, 2X/DAY
     Route: 048
     Dates: start: 20090828, end: 20090924
  2. TRIAMTERENE [Suspect]
     Indication: PAIN IN EXTREMITY
     Dosage: UNK
  3. TRIAMTERENE [Suspect]
     Indication: OEDEMA PERIPHERAL
  4. PROTONIX [Concomitant]
     Dosage: UNK
  5. DILTIAZEM [Concomitant]
     Dosage: 180 MG, UNK
     Route: 048

REACTIONS (3)
  - MUSCLE SPASMS [None]
  - OEDEMA PERIPHERAL [None]
  - PAIN [None]
